FAERS Safety Report 15966997 (Version 1)
Quarter: 2019Q1

REPORT INFORMATION
  Report Type: Spontaneous
  Country: IT (occurrence: IT)
  Receive Date: 20190215
  Receipt Date: 20190215
  Transmission Date: 20190418
  Serious: Yes (Hospitalization)
  Sender: FDA-Public Use
  Company Number: IT-TEVA-2019-IT-1011424

PATIENT
  Age: 83 Year
  Sex: Male

DRUGS (7)
  1. DELTACORTENE [Concomitant]
     Active Substance: PREDNISONE
  2. TRIATEC [Concomitant]
  3. SPIRAMYCIN [Concomitant]
     Active Substance: SPIRAMYCIN
  4. UROREC [Concomitant]
     Active Substance: SILODOSIN
  5. CLOPIDOGREL [Suspect]
     Active Substance: CLOPIDOGREL BISULFATE
     Indication: ANTIPLATELET THERAPY
     Dosage: 75 MILLIGRAM DAILY;
     Route: 048
     Dates: start: 20170701, end: 20190127
  6. CLODY [Concomitant]
     Active Substance: CLODRONATE DISODIUM
  7. DIBASE [Concomitant]
     Active Substance: CHOLECALCIFEROL

REACTIONS (1)
  - Rectal haemorrhage [Unknown]

NARRATIVE: CASE EVENT DATE: 20190127
